FAERS Safety Report 24745431 (Version 1)
Quarter: 2024Q4

REPORT INFORMATION
  Report Type: Spontaneous
  Country: US (occurrence: US)
  Receive Date: 20241217
  Receipt Date: 20241217
  Transmission Date: 20250114
  Serious: Yes (Other)
  Sender: NOVO NORDISK
  Company Number: US-NOVOPROD-1334129

PATIENT
  Age: 61 Year
  Sex: Male
  Weight: 101.68 kg

DRUGS (10)
  1. OZEMPIC [Suspect]
     Active Substance: SEMAGLUTIDE
     Indication: Type 2 diabetes mellitus
     Dosage: 0.5 MG, QW
     Route: 058
  2. TRESIBA [Suspect]
     Active Substance: INSULIN DEGLUDEC
     Indication: Type 2 diabetes mellitus
     Dosage: 22 IU, BID
     Route: 058
  3. CLOTRIMAZOLE [Concomitant]
     Active Substance: CLOTRIMAZOLE
     Indication: Product used for unknown indication
     Dosage: UNK (1 APPLICATION EXTERNALLY, BID)
  4. GABAPENTIN [Concomitant]
     Active Substance: GABAPENTIN
     Indication: Fall
     Dosage: 300 MG, TID
     Route: 048
  5. INSULIN ASPART [Suspect]
     Active Substance: INSULIN ASPART
     Indication: Type 2 diabetes mellitus
     Dosage: 15 IU, TID (PER SLIDING SCALE)
     Route: 058
  6. LISINOPRIL [Concomitant]
     Active Substance: LISINOPRIL
     Indication: Hypertension
     Dosage: 10 MG, QD
     Route: 048
  7. METFORMIN HYDROCHLORIDE [Concomitant]
     Active Substance: METFORMIN HYDROCHLORIDE
     Indication: Type 2 diabetes mellitus
     Dosage: 1000 MG, QD
     Route: 048
  8. METOPROLOLTARTRAT [Concomitant]
     Indication: Hypertension
     Dosage: 12.5 MG, BID
     Route: 048
  9. TADALAFIL [Concomitant]
     Active Substance: TADALAFIL
     Indication: Product used for unknown indication
     Dosage: 20 MG, QD (AS NEEDED)
     Route: 048
  10. TADALAFIL [Concomitant]
     Active Substance: TADALAFIL
     Dosage: AS NEEDED
     Route: 048

REACTIONS (8)
  - Deep vein thrombosis [Unknown]
  - Wound infection pseudomonas [Unknown]
  - Peripheral vascular disorder [Unknown]
  - Fall [Unknown]
  - Skin ulcer [Unknown]
  - Thermal burn [Unknown]
  - Hyperglycaemia [Unknown]
  - Oedema peripheral [Unknown]

NARRATIVE: CASE EVENT DATE: 20230423
